FAERS Safety Report 13339706 (Version 1)
Quarter: 2017Q1

REPORT INFORMATION
  Report Type: Report from Study
  Country: US (occurrence: US)
  Receive Date: 20170315
  Receipt Date: 20170315
  Transmission Date: 20170428
  Serious: Yes (Other)
  Sender: FDA-Public Use
  Company Number: US-JAZZ-2016-US-022140

PATIENT
  Sex: Female

DRUGS (42)
  1. GARLIC                             /01570501/ [Concomitant]
     Active Substance: GARLIC
  2. OYSTER SHELL [Concomitant]
     Active Substance: OSTREA EDULIS SHELL
  3. VITAMIN C [Concomitant]
     Active Substance: ASCORBIC ACID
  4. HYDROXYZINE HCL [Concomitant]
     Active Substance: HYDROXYZINE HYDROCHLORIDE
  5. GABAPENTIN. [Concomitant]
     Active Substance: GABAPENTIN
  6. KLONOPIN [Concomitant]
     Active Substance: CLONAZEPAM
  7. L-LYSINE HCL [Concomitant]
  8. LEVEMIR [Concomitant]
     Active Substance: INSULIN DETEMIR
  9. NOVOLOG [Concomitant]
     Active Substance: INSULIN ASPART
  10. MIRAPEX [Concomitant]
     Active Substance: PRAMIPEXOLE DIHYDROCHLORIDE
  11. XYREM [Suspect]
     Active Substance: SODIUM OXYBATE
     Indication: NARCOLEPSY
     Dosage: 3 G, BID
     Route: 048
     Dates: start: 201409, end: 201410
  12. LIDOCAINE. [Concomitant]
     Active Substance: LIDOCAINE
  13. MELATONIN [Concomitant]
     Active Substance: MELATONIN
  14. URSODIOL. [Concomitant]
     Active Substance: URSODIOL
  15. VICODIN [Concomitant]
     Active Substance: ACETAMINOPHEN\HYDROCODONE BITARTRATE
  16. ATENOLOL. [Concomitant]
     Active Substance: ATENOLOL
  17. SINGULAIR [Concomitant]
     Active Substance: MONTELUKAST SODIUM
  18. POTASSIUM GLUCONATE [Concomitant]
     Active Substance: POTASSIUM GLUCONATE
  19. NORCO [Concomitant]
     Active Substance: ACETAMINOPHEN\HYDROCODONE BITARTRATE
  20. NUVIGIL [Concomitant]
     Active Substance: ARMODAFINIL
  21. VITAMIN D3 [Concomitant]
     Active Substance: CHOLECALCIFEROL
  22. MAGNESIUM [Concomitant]
     Active Substance: MAGNESIUM
  23. PROBIOTIC                          /06395501/ [Concomitant]
     Active Substance: BIFIDOBACTERIUM ANIMALIS SUBSP. LACTIS
  24. XYREM [Suspect]
     Active Substance: SODIUM OXYBATE
     Dosage: DOSE ADJUSTMENT
     Route: 048
     Dates: start: 2014, end: 2016
  25. XYREM [Suspect]
     Active Substance: SODIUM OXYBATE
     Dosage: 3 G, QD
     Route: 048
     Dates: start: 201605
  26. HUMALOG [Concomitant]
     Active Substance: INSULIN LISPRO
  27. LINZESS [Concomitant]
     Active Substance: LINACLOTIDE
  28. CYMBALTA [Concomitant]
     Active Substance: DULOXETINE HYDROCHLORIDE
  29. DIOVAN [Concomitant]
     Active Substance: VALSARTAN
  30. LASIX [Concomitant]
     Active Substance: FUROSEMIDE
  31. LIPITOR [Concomitant]
     Active Substance: ATORVASTATIN CALCIUM
  32. OMEPRAZOLE. [Concomitant]
     Active Substance: OMEPRAZOLE
  33. VITAMIN B COMPLEX [Concomitant]
     Active Substance: CYANOCOBALAMIN\DEXPANTHENOL\NIACINAMIDE\PYRIDOXINE HYDROCHLORIDE\RIBOFLAVIN 5^-PHOSPHATE SODIUM\THIAMINE HYDROCHLORIDE\VITAMIN B COMPLEX
  34. SENNA                              /00142201/ [Concomitant]
     Active Substance: SENNA LEAF
  35. ALOE VERA [Concomitant]
     Active Substance: ALOE VERA LEAF
  36. BENTYL [Concomitant]
     Active Substance: DICYCLOMINE HYDROCHLORIDE
  37. MIRALAX [Concomitant]
     Active Substance: POLYETHYLENE GLYCOL 3350
  38. OXYBUTYNIN                         /00538902/ [Concomitant]
  39. RANITIDINE                         /00550802/ [Concomitant]
  40. THERMAZENE [Concomitant]
     Active Substance: SILVER SULFADIAZINE
  41. FLONASE                            /00908302/ [Concomitant]
     Active Substance: MOMETASONE FUROATE
  42. TURMERIC                           /01079601/ [Concomitant]
     Active Substance: TURMERIC

REACTIONS (5)
  - Unevaluable event [Unknown]
  - Sleep apnoea syndrome [Not Recovered/Not Resolved]
  - Circadian rhythm sleep disorder [Not Recovered/Not Resolved]
  - Somnolence [Not Recovered/Not Resolved]
  - Fall [Recovered/Resolved]
